FAERS Safety Report 5363835-7 (Version None)
Quarter: 2007Q2

REPORT INFORMATION
  Report Type: 
  Country: None (occurrence: None)
  Receive Date: 20070620
  Receipt Date: 20070611
  Transmission Date: 20071010
  Serious: Yes (Hospitalization)
  Sender: FDA-Public Use
  Company Number: DE-GILEAD-2006-0010502

PATIENT
  Sex: Female
  Weight: 98 kg

DRUGS (7)
  1. VIREAD [Suspect]
     Indication: HEPATITIS B
     Route: 048
     Dates: start: 20060929, end: 20070201
  2. VIREAD [Suspect]
  3. HEPSERA [Suspect]
     Indication: HEPATITIS B
     Dates: start: 20070201
  4. HEPSERA [Suspect]
     Dates: start: 20030701, end: 20060929
  5. CONCOR 5 [Concomitant]
     Route: 048
     Dates: start: 20001001
  6. NOVONORM [Concomitant]
     Route: 048
     Dates: start: 20061001
  7. FUROSEMIDE [Concomitant]
     Route: 048
     Dates: start: 20030101

REACTIONS (7)
  - FLUID RETENTION [None]
  - HEPATIC STEATOSIS [None]
  - HYPOKALAEMIA [None]
  - METABOLIC SYNDROME [None]
  - RENAL CYST [None]
  - RENAL FAILURE [None]
  - URINARY TRACT INFECTION [None]
